FAERS Safety Report 6809911-0 (Version None)
Quarter: 2010Q2

REPORT INFORMATION
  Report Type: 
  Country: None (occurrence: None)
  Receive Date: 20100630
  Receipt Date: 20100628
  Transmission Date: 20101027
  Serious: Yes (Death)
  Sender: FDA-Public Use
  Company Number: US-GILEAD-2010-0030042

PATIENT
  Sex: Female
  Weight: 55.842 kg

DRUGS (16)
  1. LETAIRIS [Suspect]
     Indication: PULMONARY ARTERIAL HYPERTENSION
     Route: 048
     Dates: start: 20081212
  2. OXYGEN [Concomitant]
  3. AMLODIPINE BESYLATE [Concomitant]
  4. LISINOPRIL [Concomitant]
  5. CARVEDILOL [Concomitant]
  6. ISOSORBIDE [Concomitant]
  7. LIPITOR [Concomitant]
  8. ALBUTEROL [Concomitant]
  9. GLIPIZIDE [Concomitant]
  10. METOCLOPRAMIDE [Concomitant]
  11. NEXIUM [Concomitant]
  12. LEXAPRO [Concomitant]
  13. RENAL CAPS SOFTGEL [Concomitant]
  14. KEPPRA [Concomitant]
  15. RENAGEL [Concomitant]
  16. ONE A DAY VITAMIN [Concomitant]

REACTIONS (1)
  - DEATH [None]
